FAERS Safety Report 5313765-1 (Version None)
Quarter: 2007Q2

REPORT INFORMATION
  Report Type: 
  Country: None (occurrence: None)
  Receive Date: 20070426
  Receipt Date: 20070417
  Transmission Date: 20071010
  Serious: Yes (Other)
  Sender: FDA-Public Use
  Company Number: 2007SP007209

PATIENT
  Age: 43 Year
  Sex: Female
  Weight: 59 kg

DRUGS (4)
  1. PEGETRON (PEGINERFERON ALFA-2B W/RIBAVIRIN) (PEGYLATED INTERFERON ALFA [Suspect]
     Indication: DRUG USE FOR UNKNOWN INDICATION
     Dosage: 0.5 ML; IV;  PO
     Route: 042
  2. PEGETRON (PEGINERFERON ALFA-2B W/RIBAVIRIN) (PEGYLATED INTERFERON ALFA [Suspect]
     Indication: DRUG USE FOR UNKNOWN INDICATION
     Dosage: 0.5 ML; IV;  PO
     Route: 042
  3. ZOPICLONE (CON.) [Concomitant]
  4. REMERON (CON.) [Concomitant]

REACTIONS (2)
  - DYSPNOEA [None]
  - LARYNGITIS [None]
